FAERS Safety Report 5025953-2 (Version None)
Quarter: 2006Q2

REPORT INFORMATION
  Report Type: 
  Country: None (occurrence: None)
  Receive Date: 20060612
  Receipt Date: 20060612
  Transmission Date: 20061013
  Serious: No
  Sender: FDA-Public Use
  Company Number: None

PATIENT
  Age: 19 Year
  Sex: Male
  Weight: 74 kg

DRUGS (2)
  1. CITALOPRAM HYDROBROMIDE [Suspect]
     Indication: ANXIETY
     Dosage: 20 MG 1 PER DAY PO
     Route: 048
     Dates: start: 20020514, end: 20040421
  2. CITALOPRAM HYDROBROMIDE [Suspect]
     Indication: FATIGUE
     Dosage: 20 MG 1 PER DAY PO
     Route: 048
     Dates: start: 20020514, end: 20040421

REACTIONS (7)
  - ABDOMINAL PAIN [None]
  - ABDOMINAL PAIN LOWER [None]
  - DIARRHOEA [None]
  - FLATULENCE [None]
  - LOSS OF LIBIDO [None]
  - PROCTITIS [None]
  - SEXUAL DYSFUNCTION [None]
